FAERS Safety Report 9227460 (Version 2)
Quarter: 2013Q2

REPORT INFORMATION
  Report Type: Spontaneous
  Country: IT (occurrence: IT)
  Receive Date: 20130412
  Receipt Date: 20130621
  Transmission Date: 20140414
  Serious: Yes (Hospitalization)
  Sender: FDA-Public Use
  Company Number: PHHY2013IT035366

PATIENT
  Age: 41 Year
  Sex: Female

DRUGS (2)
  1. GILENYA [Suspect]
     Indication: RELAPSING-REMITTING MULTIPLE SCLEROSIS
     Dosage: 0.5 MG, QD
     Route: 048
     Dates: start: 20111010
  2. KCL-RETARD [Concomitant]
     Dosage: 1200 MG, UNK
     Route: 048
     Dates: start: 20130310, end: 20130314

REACTIONS (1)
  - Ear infection [Recovered/Resolved]
